FAERS Safety Report 25766448 (Version 1)
Quarter: 2025Q3

REPORT INFORMATION
  Report Type: Spontaneous
  Country: US (occurrence: None)
  Receive Date: 20250904
  Receipt Date: 20250904
  Transmission Date: 20251020
  Serious: Yes (Hospitalization)
  Sender: FDA-CTU
  Company Number: None

PATIENT
  Sex: Male

DRUGS (9)
  1. VYNDAMAX [Suspect]
     Active Substance: TAFAMIDIS
     Indication: Amyloidosis
     Dosage: TAKE 1 CAPSULE BY MOUTH ONCE A DAY
     Route: 048
     Dates: start: 20241105
  2. ATORVASTATIN [Concomitant]
     Active Substance: ATORVASTATIN
  3. DONEPEZIL [Concomitant]
     Active Substance: DONEPEZIL
  4. DUTASTERIDE [Concomitant]
     Active Substance: DUTASTERIDE
  5. FUROSEMIDE [Concomitant]
     Active Substance: FUROSEMIDE
  6. JARDIANCE [Concomitant]
     Active Substance: EMPAGLIFLOZIN
  7. MAGNESIUM [Concomitant]
     Active Substance: MAGNESIUM
  8. TAMSULOSIN [Concomitant]
     Active Substance: TAMSULOSIN
  9. XARELTO [Concomitant]
     Active Substance: RIVAROXABAN

REACTIONS (3)
  - Animal bite [None]
  - Sepsis [None]
  - Therapy interrupted [None]
